FAERS Safety Report 18703189 (Version 1)
Quarter: 2021Q1

REPORT INFORMATION
  Report Type: Spontaneous
  Country: CN (occurrence: CN)
  Receive Date: 20210105
  Receipt Date: 20210105
  Transmission Date: 20210419
  Serious: Yes (Other)
  Sender: FDA-Public Use
  Company Number: CN-PFIZER INC-2021000367

PATIENT
  Age: 82 Year
  Sex: Female
  Weight: 58 kg

DRUGS (2)
  1. SOLU?MEDROL [Suspect]
     Active Substance: METHYLPREDNISOLONE SODIUM SUCCINATE
     Indication: ANTIINFLAMMATORY THERAPY
     Dosage: 40 MG, 1X/DAY
     Route: 042
     Dates: start: 20201215, end: 20201216
  2. HAI ZHENG MEI TE [Concomitant]
     Indication: ANTI-INFECTIVE THERAPY
     Dosage: 0.5 G, 3X/DAY
     Route: 041
     Dates: start: 20201215, end: 20201219

REACTIONS (3)
  - Delirium [Recovered/Resolved]
  - Poor quality sleep [Recovering/Resolving]
  - Disorganised speech [Recovering/Resolving]

NARRATIVE: CASE EVENT DATE: 20201215
